FAERS Safety Report 5330257-4 (Version None)
Quarter: 2007Q2

REPORT INFORMATION
  Report Type: 
  Country: None (occurrence: None)
  Receive Date: 20070521
  Receipt Date: 20070517
  Transmission Date: 20071010
  Serious: Yes (Life-Threatening)
  Sender: FDA-Public Use
  Company Number: JP-GENENTECH-232733

PATIENT
  Age: 70 Year
  Sex: Male

DRUGS (8)
  1. ACTIVASE [Suspect]
     Indication: CEREBRAL INFARCTION
     Dosage: 24 MIU/M2, SINGLE
     Route: 042
     Dates: start: 20060711, end: 20060711
  2. RADICUT [Suspect]
     Indication: CEREBRAL INFARCTION
     Dosage: 60 MG, UNK
     Dates: start: 20060711, end: 20060719
  3. CEFPIROME SULFATE [Suspect]
     Indication: PNEUMONIA
     Dosage: 2 G, UNK
     Dates: start: 20060711, end: 20060715
  4. OMEPRAL [Suspect]
     Indication: PROPHYLAXIS
     Dosage: 2 UNK, UNK
     Dates: start: 20060711, end: 20060717
  5. CATACLOT [Suspect]
     Indication: CEREBRAL INFARCTION
     Dosage: 160 MG, UNK
     Dates: start: 20060712, end: 20060719
  6. DEXTRAN 40 W GLUCOSE [Concomitant]
     Indication: DRUG USE FOR UNKNOWN INDICATION
     Dates: start: 20060711, end: 20060715
  7. HEPARIN [Concomitant]
     Indication: DRUG USE FOR UNKNOWN INDICATION
     Dates: start: 20060712, end: 20060714
  8. ASPIRIN [Concomitant]
     Indication: PROPHYLAXIS
     Dates: start: 20060711

REACTIONS (1)
  - STEVENS-JOHNSON SYNDROME [None]
